FAERS Safety Report 5520500-0 (Version None)
Quarter: 2007Q4

REPORT INFORMATION
  Report Type: 
  Country: None (occurrence: None)
  Receive Date: 20071119
  Receipt Date: 20071107
  Transmission Date: 20080405
  Serious: Yes (Death, Hospitalization, Other)
  Sender: FDA-Public Use
  Company Number: US-ELI_LILLY_AND_COMPANY-US200711002318

PATIENT
  Age: 67 Year
  Sex: Female

DRUGS (5)
  1. GEMZAR [Suspect]
     Indication: PANCREATIC CARCINOMA STAGE II
     Dosage: UNK, OTHER
  2. METOPROLOL TARTRATE [Concomitant]
  3. FUROSEMIDE [Concomitant]
  4. LISINOPRIL [Concomitant]
  5. DARBEPOETIN ALFA [Concomitant]
     Dosage: UNK, OTHER

REACTIONS (7)
  - DEATH [None]
  - HAEMOLYTIC URAEMIC SYNDROME [None]
  - HAEMORRHAGE INTRACRANIAL [None]
  - PNEUMONIA [None]
  - RESPIRATORY FAILURE [None]
  - SEPSIS [None]
  - THROMBOTIC THROMBOCYTOPENIC PURPURA [None]
